FAERS Safety Report 10270794 (Version 1)
Quarter: 2014Q3

REPORT INFORMATION
  Report Type: Spontaneous
  Country: GB (occurrence: GB)
  Receive Date: 20140701
  Receipt Date: 20140701
  Transmission Date: 20150326
  Serious: Yes (Other)
  Sender: FDA-Public Use
  Company Number: GB-TEVA-490598ISR

PATIENT
  Age: 65 Year
  Sex: Female
  Weight: 104.78 kg

DRUGS (9)
  1. LEVOTHYROXINE [Concomitant]
     Active Substance: LEVOTHYROXINE
     Dates: start: 20140324, end: 20140529
  2. BENDROFLUMETHIAZIDE [Concomitant]
     Active Substance: BENDROFLUMETHIAZIDE
     Dates: start: 20140324, end: 20140529
  3. CO-DYDRAMOL [Concomitant]
     Active Substance: ACETAMINOPHEN\DIHYDROCODEINE
     Dates: start: 20140324, end: 20140529
  4. AMLODIPINE [Concomitant]
     Active Substance: AMLODIPINE BESYLATE
     Dates: start: 20140324, end: 20140529
  5. OLMESARTAN MEDOXOMIL [Concomitant]
     Active Substance: OLMESARTAN MEDOXOMIL
     Dates: start: 20140324, end: 20140529
  6. MELOXICAM. [Suspect]
     Active Substance: MELOXICAM
     Dates: start: 20140513, end: 20140612
  7. ATENOLOL. [Concomitant]
     Active Substance: ATENOLOL
     Dates: start: 20140324, end: 20140529
  8. MOVELAT [Concomitant]
     Dates: start: 20140513, end: 20140518
  9. MUCOPOLYSACCHARIDES NOS [Concomitant]
     Dates: start: 20140513, end: 20140517

REACTIONS (2)
  - Myalgia [Recovering/Resolving]
  - Diarrhoea [Recovering/Resolving]

NARRATIVE: CASE EVENT DATE: 20140604
